FAERS Safety Report 8544478-0 (Version None)
Quarter: 2012Q3

REPORT INFORMATION
  Report Type: 
  Country: None (occurrence: None)
  Receive Date: 20120717
  Receipt Date: 20120702
  Transmission Date: 20120928
  Serious: Yes (Disabling, Other)
  Sender: FDA-Public Use
  Company Number: QSC-2012-0128

PATIENT
  Age: 63 Year
  Sex: Male
  Weight: 89.8 kg

DRUGS (9)
  1. CELLCEPT [Suspect]
     Dates: end: 20120601
  2. ASPIRIN (CHILDREN (ACETYLSALICYLIC ACID) [Concomitant]
  3. BENICAR [Concomitant]
  4. VITAMIN D 2000 (CALCIUM CARBONATE, COLECALCIFEROL) [Concomitant]
  5. FUROSEMIDE [Concomitant]
  6. METOLAZONE [Concomitant]
  7. POTASSIUM CHLORIDE [Concomitant]
  8. ACTHAR [Suspect]
     Indication: FOCAL SEGMENTAL GLOMERULOSCLEROSIS
     Dosage: 0/8 ML THREE TIMES PER WEEK ; 0.8 ML, IW
     Dates: start: 20120401, end: 20120601
  9. ACTHAR [Suspect]
     Indication: FOCAL SEGMENTAL GLOMERULOSCLEROSIS
     Dosage: 0/8 ML THREE TIMES PER WEEK ; 0.8 ML, IW
     Dates: start: 20120101, end: 20120401

REACTIONS (1)
  - OBLITERATIVE BRONCHIOLITIS [None]
